FAERS Safety Report 4342992-5 (Version None)
Quarter: 2004Q2

REPORT INFORMATION
  Report Type: 
  Country: None (occurrence: None)
  Receive Date: 20040416
  Receipt Date: 20040409
  Transmission Date: 20050107
  Serious: Yes (Hospitalization, Disabling)
  Sender: FDA-Public Use
  Company Number: 200308657

PATIENT
  Age: 68 Year
  Sex: Female

DRUGS (13)
  1. STREPTOKINASE (STREPTOKINASE) (UNKNOWN) [Suspect]
     Indication: MYOCARDIAL INFARCTION
     Dosage: 1.5 MIU DAILY IV
     Route: 042
     Dates: start: 20030414, end: 20030414
  2. ASPIRIN [Suspect]
     Indication: MYOCARDIAL INFARCTION
     Dosage: 150 MG DAILY PO
     Route: 048
     Dates: start: 20030414, end: 20030414
  3. ENOXAPARIN OR PLACEBO VS. HEPARIN OR PLACEBO [Suspect]
     Indication: MYOCARDIAL INFARCTION
     Dosage: IV
     Route: 042
     Dates: start: 20030414, end: 20030415
  4. HEPARIN [Suspect]
  5. PLACEBO [Suspect]
  6. AVAPRO [Concomitant]
  7. PLENDIL [Concomitant]
  8. QUININE SULFATE [Concomitant]
  9. RANITIDINE [Concomitant]
  10. SEREPAX [Concomitant]
  11. PROCHLORPERAZINE [Concomitant]
  12. VIOXX [Concomitant]
  13. ZYLOPRIM [Concomitant]

REACTIONS (9)
  - CONTUSION [None]
  - HAEMATOMA [None]
  - HAEMOGLOBIN DECREASED [None]
  - INFUSION SITE REACTION [None]
  - OEDEMA PERIPHERAL [None]
  - PAIN [None]
  - PARAESTHESIA [None]
  - POST PROCEDURAL HAEMORRHAGE [None]
  - SKIN DISCOLOURATION [None]
